FAERS Safety Report 5472690-6 (Version None)
Quarter: 2007Q4

REPORT INFORMATION
  Report Type: 
  Country: None (occurrence: None)
  Receive Date: 20071001
  Receipt Date: 20060929
  Transmission Date: 20080405
  Serious: No
  Sender: FDA-Public Use
  Company Number: US-ASTRAZENECA-2006UW19004

PATIENT
  Age: 70 Year
  Sex: Female

DRUGS (6)
  1. ARIMIDEX [Suspect]
     Indication: BREAST CANCER RECURRENT
     Route: 048
     Dates: start: 20060501
  2. ZETIA [Concomitant]
  3. LASIX [Concomitant]
  4. ZOLOFT [Concomitant]
  5. FOSAMAX [Concomitant]
  6. PRINIVIL [Concomitant]

REACTIONS (1)
  - PHOTOPHOBIA [None]
